FAERS Safety Report 11258692 (Version 1)
Quarter: 2015Q2

REPORT INFORMATION
  Report Type: Spontaneous
  Country: US (occurrence: None)
  Receive Date: 20150617
  Receipt Date: 20150617
  Transmission Date: 20150821
  Serious: No
  Sender: FDA-Public Use
  Company Number: 2014TASUS000602

PATIENT
  Age: 58 Year
  Sex: Female

DRUGS (16)
  1. TRAZODONE HCL (TRAZODONE HYDROCHLORIDE) [Concomitant]
  2. TOPROL XL [Concomitant]
     Active Substance: METOPROLOL SUCCINATE
  3. MIRALAX [Concomitant]
     Active Substance: POLYETHYLENE GLYCOL 3350
  4. LISINOPRIL. [Concomitant]
     Active Substance: LISINOPRIL
  5. GABAPENTIN. [Concomitant]
     Active Substance: GABAPENTIN
  6. CYANOCOBALAMIN. [Concomitant]
     Active Substance: CYANOCOBALAMIN
  7. ALBUTEROL (SALBUTAMOL SULFATE) [Concomitant]
  8. TIMOLOL MALEATE. [Concomitant]
     Active Substance: TIMOLOL MALEATE
  9. AMBIEN [Concomitant]
     Active Substance: ZOLPIDEM TARTRATE
  10. PERCOCET (OXYCODONE HYDROCHLORIDE, PARACETAMOL) [Concomitant]
  11. CLONIDINE HCL (CLONIDINE HYDROCHLORIDE) [Concomitant]
  12. LIPITOR [Concomitant]
     Active Substance: ATORVASTATIN CALCIUM
  13. FLONASE [Concomitant]
     Active Substance: FLUTICASONE PROPIONATE
  14. HETLIOZ [Suspect]
     Active Substance: TASIMELTEON
     Indication: CIRCADIAN RHYTHM SLEEP DISORDER
     Dates: start: 20141106
  15. VITAMIN D (COLECALCIFEROL) [Concomitant]
  16. HYDRALAZINE HCL (HYDRALAZINE HYDROCHLORIDE) [Concomitant]

REACTIONS (1)
  - Drug ineffective [None]
